FAERS Safety Report 4378263-0 (Version None)
Quarter: 2004Q2

REPORT INFORMATION
  Report Type: 
  Country: None (occurrence: None)
  Receive Date: 20040616
  Receipt Date: 20040305
  Transmission Date: 20050107
  Serious: Yes (Hospitalization, Other)
  Sender: FDA-Public Use
  Company Number: GR-BRISTOL-MYERS SQUIBB COMPANY-12526364

PATIENT
  Age: 30 Year
  Sex: Male

DRUGS (5)
  1. DIDANOSINE [Suspect]
     Indication: HIV INFECTION
     Dosage: THERAPY DISCONTINUED 26-JAN-2004 AND RE-STARTED 26-MAR-2004.
     Route: 048
     Dates: start: 20030901
  2. VIREAD [Suspect]
     Indication: HIV INFECTION
     Dosage: THERAPY DISCONTINUED ON 26-JAN-2004 AND RE-STARTED ON 26-MAR-2004.
     Route: 048
     Dates: start: 20030901, end: 20040507
  3. ENFUVIRTIDE [Concomitant]
     Dates: start: 20031122, end: 20040126
  4. KALETRA [Concomitant]
     Dosage: THERAPY DISCONTINUED ON 26-JAN-2004 AND RE-STARTED ON 26-MAR-2004.
     Dates: start: 20030901
  5. SAQUINAVIR [Concomitant]
     Dosage: THERAPY DISCONTINUED ON 26-JAN-2004 AND RE-STARTED ON 26-MAR-2004.
     Dates: start: 20030901

REACTIONS (2)
  - RENAL IMPAIRMENT [None]
  - WEIGHT DECREASED [None]
